FAERS Safety Report 7462997-5 (Version None)
Quarter: 2011Q1

REPORT INFORMATION
  Report Type: 
  Country: None (occurrence: None)
  Receive Date: 20110302
  Receipt Date: 20101217
  Transmission Date: 20110831
  Serious: Yes (Death, Hospitalization)
  Sender: FDA-Public Use
  Company Number: 163-21880-10111498

PATIENT
  Age: 83 Year
  Sex: Male

DRUGS (10)
  1. REVLIMID [Suspect]
     Indication: MULTIPLE MYELOMA
     Dosage: 25 MG, DAILY FOR 21 DAYS EVERY 28 DAYS, PO, 15 MG, DAILY FOR 21 DAYS EVERY 28 DAYS, PO
     Route: 048
     Dates: start: 20101018, end: 20101111
  2. REVLIMID [Suspect]
     Indication: MULTIPLE MYELOMA
     Dosage: 25 MG, DAILY FOR 21 DAYS EVERY 28 DAYS, PO, 15 MG, DAILY FOR 21 DAYS EVERY 28 DAYS, PO
     Route: 048
     Dates: start: 20100329, end: 20101018
  3. WARFARIN (WARFARIN) [Concomitant]
  4. NORVASC [Concomitant]
  5. ZOMETA [Concomitant]
  6. DEXAMETHASONE [Concomitant]
  7. LASIX [Concomitant]
  8. SIMVASTATIN [Concomitant]
  9. LYRICA [Concomitant]
  10. KLOR-CON [Concomitant]

REACTIONS (2)
  - SALIVARY GLAND CANCER [None]
  - TOXICITY TO VARIOUS AGENTS [None]
